FAERS Safety Report 14670630 (Version 3)
Quarter: 2018Q2

REPORT INFORMATION
  Report Type: Spontaneous
  Country: US (occurrence: US)
  Receive Date: 20180322
  Receipt Date: 20180507
  Transmission Date: 20180711
  Serious: No
  Sender: FDA-Public Use
  Company Number: US-TAIHO ONCOLOGY INC-EU-2018-00391

PATIENT
  Age: 84 Year
  Sex: Male
  Weight: 85.53 kg

DRUGS (14)
  1. AMLODIPINE [Concomitant]
     Active Substance: AMLODIPINE BESYLATE
     Route: 048
     Dates: start: 20180321
  2. GINKGO BILOBA [Concomitant]
     Active Substance: GINKGO
     Route: 048
     Dates: start: 20160506
  3. BIOTIN [Concomitant]
     Active Substance: BIOTIN
     Route: 048
     Dates: start: 20160505
  4. XANTOFYL [Concomitant]
     Route: 048
     Dates: start: 20160505
  5. MAGNESIUM [Concomitant]
     Active Substance: MAGNESIUM
     Route: 048
     Dates: start: 20160505
  6. RETINOL [Concomitant]
     Active Substance: RETINOL
     Dates: start: 20160505
  7. PYRIDOXINE HYDROCHLORIDE. [Concomitant]
     Active Substance: PYRIDOXINE HYDROCHLORIDE
     Route: 048
     Dates: start: 20170920
  8. BACTROBAN [Concomitant]
     Active Substance: MUPIROCIN\MUPIROCIN CALCIUM
     Indication: NAIL INFECTION
     Dosage: APPLY SMALL AMOUNT TO INFECTED NAILS FOR ONE WEEK, THEN REPEAT AS NEEDED
     Route: 061
     Dates: start: 20170719
  9. AMBIEN [Concomitant]
     Active Substance: ZOLPIDEM TARTRATE
     Indication: SLEEP DISORDER
     Dosage: 1-2 Q. DAY AT BEDTIME (HS) PRN
     Route: 048
     Dates: start: 20180221
  10. TRIAMCINOLONE [Concomitant]
     Active Substance: TRIAMCINOLONE
     Dosage: APPLY TO CHEST AND ARMS
     Dates: start: 20170613
  11. VISION ESSENTIALS [Concomitant]
     Route: 048
     Dates: start: 20160505
  12. LONSURF [Suspect]
     Active Substance: TIPIRACIL HYDROCHLORIDE\TRIFLURIDINE
     Indication: COLORECTAL CANCER METASTATIC
     Route: 048
     Dates: start: 20180122
  13. PARACETAMOL [Concomitant]
     Active Substance: ACETAMINOPHEN
     Indication: PAIN
     Dates: start: 20160714
  14. VIRTUSSIN AC [Concomitant]
     Active Substance: CODEINE PHOSPHATE\GUAIFENESIN
     Indication: COUGH
     Dosage: 10 MG-100 MG/5 ML LIQUID Q 6 HRS PRN
     Route: 048
     Dates: start: 20180215

REACTIONS (11)
  - Dyspnoea [Not Recovered/Not Resolved]
  - Cough [Not Recovered/Not Resolved]
  - Stoma site haemorrhage [Recovering/Resolving]
  - Fatigue [Unknown]
  - Dyspnoea exertional [Not Recovered/Not Resolved]
  - Postoperative wound infection [Recovered/Resolved]
  - Abdominal distension [Not Recovered/Not Resolved]
  - Product quality issue [Unknown]
  - Nausea [Not Recovered/Not Resolved]
  - Oedema peripheral [Not Recovered/Not Resolved]
  - Disease progression [Unknown]

NARRATIVE: CASE EVENT DATE: 2018
